FAERS Safety Report 25208986 (Version 2)
Quarter: 2025Q3

REPORT INFORMATION
  Report Type: Spontaneous
  Country: JP (occurrence: JP)
  Receive Date: 20250417
  Receipt Date: 20250714
  Transmission Date: 20251020
  Serious: Yes (Death, Other)
  Sender: BRISTOL-MYERS SQUIBB COMPANY
  Company Number: JP-ONO-2025JP006618

PATIENT
  Age: 91 Year
  Sex: Male

DRUGS (1)
  1. OPDIVO [Suspect]
     Active Substance: NIVOLUMAB
     Indication: Gastric cancer
     Route: 041
     Dates: start: 202503, end: 202504

REACTIONS (3)
  - Myocarditis [Fatal]
  - Decreased appetite [Unknown]
  - Dehydration [Unknown]

NARRATIVE: CASE EVENT DATE: 20250401
